FAERS Safety Report 20376077 (Version 1)
Quarter: 2022Q1

REPORT INFORMATION
  Report Type: Spontaneous
  Country: US (occurrence: US)
  Receive Date: 20220125
  Receipt Date: 20220125
  Transmission Date: 20220423
  Serious: Yes (Other)
  Sender: FDA-Public Use
  Company Number: US-PFIZER INC-202200106179

PATIENT
  Age: 38 Year
  Sex: Female
  Weight: 43.09 kg

DRUGS (2)
  1. PAXLOVID [Suspect]
     Active Substance: NIRMATRELVIR\RITONAVIR
     Dosage: UNK
  2. COUMADIN [Concomitant]
     Active Substance: WARFARIN SODIUM
     Dosage: UNK

REACTIONS (12)
  - Hallucination [Unknown]
  - Visual impairment [Unknown]
  - Illness [Unknown]
  - Asthenia [Unknown]
  - Headache [Unknown]
  - Retching [Unknown]
  - Diarrhoea [Unknown]
  - Muscle contracture [Unknown]
  - Limb discomfort [Unknown]
  - Fatigue [Unknown]
  - Ageusia [Unknown]
  - Dysgeusia [Unknown]
